FAERS Safety Report 5386643-X (Version None)
Quarter: 2007Q3

REPORT INFORMATION
  Report Type: 
  Country: None (occurrence: None)
  Receive Date: 20070713
  Receipt Date: 20070705
  Transmission Date: 20080115
  Serious: Yes (Death)
  Sender: FDA-Public Use
  Company Number: US-ELI_LILLY_AND_COMPANY-US200704002148

PATIENT
  Age: 75 Year
  Sex: Male

DRUGS (3)
  1. XIGRIS [Suspect]
     Indication: SYSTEMIC INFLAMMATORY RESPONSE SYNDROME
     Dates: start: 20070402, end: 20070407
  2. HEPARIN [Concomitant]
     Indication: THROMBOSIS PROPHYLAXIS
  3. ASPIRIN [Concomitant]
     Dosage: 325 MG, DAILY (1/D)

REACTIONS (1)
  - SUBARACHNOID HAEMORRHAGE [None]
